FAERS Safety Report 7489907-9 (Version None)
Quarter: 2011Q2

REPORT INFORMATION
  Report Type: 
  Country: None (occurrence: None)
  Receive Date: 20110512
  Receipt Date: 20110429
  Transmission Date: 20111010
  Serious: Yes (Disabling)
  Sender: FDA-Public Use
  Company Number: 2011CP000070

PATIENT
  Age: 18 Month
  Sex: Male

DRUGS (5)
  1. PHENYTOIN [Concomitant]
  2. ACYCLOVIR [Concomitant]
  3. OSELTAMIVIR [Concomitant]
  4. ACETAMINOPHEN [Suspect]
     Indication: PYREXIA
     Dosage: 240 MG; ; IV
     Route: 042
     Dates: start: 20110101, end: 20110101
  5. CEFOTAXIME [Concomitant]

REACTIONS (4)
  - COAGULOPATHY [None]
  - ALANINE AMINOTRANSFERASE INCREASED [None]
  - HAEMORRHAGE [None]
  - INTERNATIONAL NORMALISED RATIO INCREASED [None]
